FAERS Safety Report 16915345 (Version 1)
Quarter: 2019Q4

REPORT INFORMATION
  Report Type: Spontaneous
  Country: US (occurrence: US)
  Receive Date: 20191014
  Receipt Date: 20191014
  Transmission Date: 20200122
  Serious: No
  Sender: FDA-Public Use
  Company Number: US-TEVA-2019-US-1120346

PATIENT
  Age: 67 Year
  Sex: Female

DRUGS (1)
  1. ALBUTEROL SULFATE HFA [Suspect]
     Active Substance: ALBUTEROL SULFATE

REACTIONS (2)
  - Headache [Unknown]
  - Drug delivery system malfunction [Unknown]

NARRATIVE: CASE EVENT DATE: 20191006
